FAERS Safety Report 4832067-0 (Version None)
Quarter: 2005Q4

REPORT INFORMATION
  Report Type: 
  Country: None (occurrence: None)
  Receive Date: 20051118
  Receipt Date: 20050301
  Transmission Date: 20060501
  Serious: Yes (Congenital Anomaly)
  Sender: FDA-Public Use
  Company Number: GB-ABBOTT-05P-167-0292430-00

PATIENT
  Sex: Female
  Weight: 2.66 kg

DRUGS (1)
  1. VALPROATE SODIUM [Suspect]
     Indication: DRUG EXPOSURE DURING PREGNANCY

REACTIONS (17)
  - ABNORMAL BEHAVIOUR [None]
  - ASTHMA [None]
  - DEVELOPMENTAL DELAY [None]
  - DIFFICULTY IN WALKING [None]
  - DRUG EXPOSURE DURING PREGNANCY [None]
  - EDUCATIONAL PROBLEM [None]
  - EXPRESSIVE LANGUAGE DISORDER [None]
  - EYE DISORDER [None]
  - FOETAL VALPROATE SYNDROME [None]
  - HEAD BANGING [None]
  - INTENTIONAL SELF-INJURY [None]
  - MYOPIA [None]
  - NEURODEVELOPMENTAL DISORDER [None]
  - SPEECH DISORDER [None]
  - SPEECH DISORDER DEVELOPMENTAL [None]
  - TIBIAL TORSION [None]
  - TOE DEFORMITY [None]
